FAERS Safety Report 4963510-4 (Version None)
Quarter: 2006Q2

REPORT INFORMATION
  Report Type: 
  Country: None (occurrence: None)
  Receive Date: 20060405
  Receipt Date: 20060321
  Transmission Date: 20061013
  Serious: Yes (Hospitalization)
  Sender: FDA-Public Use
  Company Number: GBWYE499822MAR06

PATIENT
  Sex: Male

DRUGS (13)
  1. ENBREL [Suspect]
     Indication: RHEUMATOID ARTHRITIS
     Dosage: 50 MG, FREQUENCY UNSPECIFIED
     Route: 058
     Dates: start: 20051206, end: 20060128
  2. ACETYLSALICYLIC ACID SRT [Suspect]
     Dosage: 75 MG, FREQUENCY UNKNOWN
     Dates: start: 20060204, end: 20060207
  3. WARFARIN [Suspect]
     Dosage: 5 MG
  4. DELTACORTRIL [Suspect]
  5. ARAVA [Suspect]
  6. NEXIUM [Concomitant]
  7. CALCICHEW-D3 FORTE [Concomitant]
  8. FOSAMAX [Concomitant]
  9. FUROSEMIDE [Concomitant]
  10. DILTIAZEM [Concomitant]
  11. DELTACORTRIL [Concomitant]
  12. ARAVA [Concomitant]
  13. DICLOFENAC SODIUM [Concomitant]

REACTIONS (3)
  - CARDIAC FAILURE [None]
  - CEREBROVASCULAR DISORDER [None]
  - PNEUMONIA [None]
